FAERS Safety Report 6568282-8 (Version None)
Quarter: 2010Q1

REPORT INFORMATION
  Report Type: 
  Country: None (occurrence: None)
  Receive Date: 20100129
  Receipt Date: 20100121
  Transmission Date: 20100710
  Serious: Yes (Death, Other)
  Sender: FDA-Public Use
  Company Number: CIP10000147

PATIENT
  Sex: Female

DRUGS (4)
  1. RISEDRONATE SODIUM [Suspect]
     Indication: OSTEOPOROSIS
     Dosage: 35 MG ONCE WEEKLY, ORAL
     Route: 048
  2. RISEDRONATE SODIUM [Suspect]
     Indication: OSTEOPOROSIS PROPHYLAXIS
     Dosage: 35 MG ONCE WEEKLY, ORAL
     Route: 048
  3. ANASTROZOLE [Suspect]
     Indication: BREAST CANCER
     Dosage: 1 MG, DAILY, ORAL
     Route: 048
  4. CALCIUM + VITAMIN D (CALCIUM, COLECALCIFEROL) [Concomitant]

REACTIONS (16)
  - ABDOMINAL PAIN [None]
  - ALOPECIA [None]
  - ARTHRALGIA [None]
  - ASTHENIA [None]
  - BONE PAIN [None]
  - CHRONIC OBSTRUCTIVE PULMONARY DISEASE [None]
  - DIZZINESS [None]
  - FATIGUE [None]
  - FRACTURED SACRUM [None]
  - INSOMNIA [None]
  - NAUSEA [None]
  - NIGHT SWEATS [None]
  - OSTEOARTHRITIS [None]
  - TOOTH FRACTURE [None]
  - TRANSIENT ISCHAEMIC ATTACK [None]
  - VERTIGO [None]
